FAERS Safety Report 20664165 (Version 2)
Quarter: 2022Q2

REPORT INFORMATION
  Report Type: Spontaneous
  Country: US (occurrence: None)
  Receive Date: 20220401
  Receipt Date: 20220603
  Transmission Date: 20220721
  Serious: No
  Sender: FDA-Public Use
  Company Number: US-Merck Healthcare KGaA-9309886

PATIENT
  Sex: Female

DRUGS (1)
  1. EUTHYROX [Suspect]
     Active Substance: LEVOTHYROXINE SODIUM
     Indication: Thyroid disorder
     Dosage: NDC: 7230507530
     Route: 048
     Dates: start: 202103, end: 202205

REACTIONS (4)
  - Blood thyroid stimulating hormone increased [Recovered/Resolved]
  - Maternal exposure during pregnancy [Not Recovered/Not Resolved]
  - Product storage error [Unknown]
  - Poor quality product administered [Unknown]
